FAERS Safety Report 12835856 (Version 1)
Quarter: 2016Q4

REPORT INFORMATION
  Report Type: Spontaneous
  Country: US (occurrence: US)
  Receive Date: 20161008
  Receipt Date: 20161008
  Transmission Date: 20170207
  Serious: Yes (Hospitalization)
  Sender: FDA-Public Use
  Company Number: None

PATIENT
  Age: 18 Month
  Sex: Female
  Weight: 12.26 kg

DRUGS (6)
  1. ALBUTEROL SULFATE. [Concomitant]
     Active Substance: ALBUTEROL SULFATE
  2. TYLENOL [Concomitant]
     Active Substance: ACETAMINOPHEN
  3. BUDESONIDE. [Concomitant]
     Active Substance: BUDESONIDE
  4. MOTRIN [Concomitant]
     Active Substance: IBUPROFEN
  5. BABY TEETHING (HYLAND HOMEOPATHIC) [Suspect]
     Active Substance: HOMEOPATHICS
     Indication: TEETHING
     Dosage: 0.5 FL OZ 1/4^ RIBBON EVERY 15 MIN AS NEEDED PUT ON HER GUMS
     Route: 061
  6. BANOPHEN ELIXIR [Concomitant]

REACTIONS (4)
  - Seizure [None]
  - Product quality issue [None]
  - Unresponsive to stimuli [None]
  - Apnoea [None]

NARRATIVE: CASE EVENT DATE: 20160917
